FAERS Safety Report 15906982 (Version 2)
Quarter: 2019Q1

REPORT INFORMATION
  Report Type: Spontaneous
  Country: US (occurrence: US)
  Receive Date: 20190204
  Receipt Date: 20190307
  Transmission Date: 20190417
  Serious: No
  Sender: FDA-Public Use
  Company Number: US-PFIZER INC-2019051311

PATIENT
  Age: 62 Year
  Sex: Male

DRUGS (1)
  1. SUTENT [Suspect]
     Active Substance: SUNITINIB MALATE
     Indication: RENAL CANCER
     Dosage: 25 MG, CYCLIC (DAILY FOR 14 DAYS ON FOLLOWED BY 7 DAYS OFF)
     Route: 048

REACTIONS (7)
  - Mood swings [Unknown]
  - Agitation [Unknown]
  - Memory impairment [Unknown]
  - Dyspepsia [Unknown]
  - Fatigue [Unknown]
  - Hernia [Unknown]
  - Constipation [Unknown]
